FAERS Safety Report 7597497-5 (Version None)
Quarter: 2011Q3

REPORT INFORMATION
  Report Type: 
  Country: None (occurrence: None)
  Receive Date: 20110708
  Receipt Date: 20110701
  Transmission Date: 20111222
  Serious: Yes (Death, Hospitalization)
  Sender: FDA-Public Use
  Company Number: PHHY2010MX59054

PATIENT
  Age: 60 Year
  Sex: Female

DRUGS (11)
  1. KETOSTERIL [Concomitant]
  2. OMEPRAZOLE [Concomitant]
  3. LERCADIP [Concomitant]
     Dosage: UNK UKN, UNK
  4. ASPIRIN [Concomitant]
  5. CLOPIDOGREL [Concomitant]
  6. PRAZOSIN HCL [Concomitant]
  7. DIOVAN [Suspect]
     Indication: HYPERTENSION
     Dosage: 160 MG, (1 TABLET PER DAY)
     Route: 048
     Dates: start: 20100801
  8. LIPITOR [Concomitant]
  9. SPIRONOLACTONE [Concomitant]
  10. LOSARTAN POTASSIUM [Concomitant]
  11. INSULIN [Concomitant]

REACTIONS (13)
  - CARDIOVASCULAR DISORDER [None]
  - PULMONARY OEDEMA [None]
  - FATIGUE [None]
  - AGITATION [None]
  - QUADRIPLEGIA [None]
  - RENAL FAILURE [None]
  - THROMBOSIS [None]
  - HYPERTENSION [None]
  - CEREBRAL THROMBOSIS [None]
  - DIABETES MELLITUS [None]
  - DISEASE PROGRESSION [None]
  - CARDIO-RESPIRATORY ARREST [None]
  - COMA [None]
